FAERS Safety Report 7117759-5 (Version None)
Quarter: 2010Q4

REPORT INFORMATION
  Report Type: 
  Country: None (occurrence: None)
  Receive Date: 20101123
  Receipt Date: 20101112
  Transmission Date: 20110411
  Serious: No
  Sender: FDA-Public Use
  Company Number: US-BIOGENIDEC-2010BI040374

PATIENT
  Sex: Male

DRUGS (2)
  1. TYSABRI [Suspect]
     Indication: MULTIPLE SCLEROSIS
     Route: 042
     Dates: start: 20080201, end: 20100301
  2. RITALIN [Concomitant]
     Indication: FATIGUE

REACTIONS (6)
  - ANXIETY [None]
  - COGNITIVE DISORDER [None]
  - INSOMNIA [None]
  - MOBILITY DECREASED [None]
  - MUSCLE SPASMS [None]
  - STRESS [None]
